FAERS Safety Report 25008821 (Version 1)
Quarter: 2025Q1

REPORT INFORMATION
  Report Type: Spontaneous
  Country: GB (occurrence: GB)
  Receive Date: 20250225
  Receipt Date: 20250225
  Transmission Date: 20250408
  Serious: Yes (Other)
  Sender: AUROBINDO
  Company Number: GB-MHRA-TPP23463518C3319549YC1738752574701

PATIENT
  Age: 40 Year
  Sex: Female
  Weight: 59 kg

DRUGS (5)
  1. CLARITHROMYCIN [Suspect]
     Active Substance: CLARITHROMYCIN
     Indication: Ill-defined disorder
     Route: 065
     Dates: start: 20250205
  2. DOXYCYCLINE [Concomitant]
     Active Substance: DOXYCYCLINE
     Indication: Ill-defined disorder
     Route: 065
     Dates: start: 20241107, end: 20241114
  3. FLUTICASONE PROPIONATE [Concomitant]
     Active Substance: FLUTICASONE PROPIONATE
     Indication: Ill-defined disorder
     Dosage: UNK, TWO SPRAYS INTO EACH NOSTRIL ONCE A DAY
     Route: 065
     Dates: start: 20241114, end: 20241115
  4. BETAHISTINE [Concomitant]
     Active Substance: BETAHISTINE
     Indication: Ill-defined disorder
     Dosage: UNK, TAKE ONE THREE TIMES DAILY
     Route: 065
     Dates: start: 20241212, end: 20250109
  5. FLUOXETINE [Concomitant]
     Active Substance: FLUOXETINE HYDROCHLORIDE
     Indication: Ill-defined disorder
     Route: 065
     Dates: start: 20240220

REACTIONS (2)
  - Swelling face [Recovered/Resolved]
  - Mouth swelling [Recovered/Resolved]

NARRATIVE: CASE EVENT DATE: 20250205
